FAERS Safety Report 25046377 (Version 2)
Quarter: 2025Q1

REPORT INFORMATION
  Report Type: Report from Study
  Country: DE (occurrence: DE)
  Receive Date: 20250306
  Receipt Date: 20250307
  Transmission Date: 20250409
  Serious: No
  Sender: MERCK SHARP & DOHME LLC
  Company Number: DE-009507513-2245098

PATIENT
  Age: 38 Year
  Sex: Female

DRUGS (7)
  1. WINREVAIR [Suspect]
     Active Substance: SOTATERCEPT-CSRK
     Indication: Pulmonary arterial hypertension
     Dates: start: 20241008, end: 20250219
  2. WINREVAIR [Suspect]
     Active Substance: SOTATERCEPT-CSRK
     Dates: start: 20241105, end: 20250226
  3. WINREVAIR [Suspect]
     Active Substance: SOTATERCEPT-CSRK
  4. WINREVAIR [Suspect]
     Active Substance: SOTATERCEPT-CSRK
  5. RAMIPRIL [Suspect]
     Active Substance: RAMIPRIL
  6. TORSEMIDE [Suspect]
     Active Substance: TORSEMIDE
  7. PANTOPRAZOLE SODIUM [Concomitant]
     Active Substance: PANTOPRAZOLE SODIUM

REACTIONS (9)
  - Perioral dermatitis [Recovered/Resolved with Sequelae]
  - Flushing [Recovered/Resolved]
  - Flushing [Recovered/Resolved]
  - Influenza [Unknown]
  - Headache [Recovered/Resolved]
  - Dizziness [Recovered/Resolved]
  - Haemoglobin increased [Recovered/Resolved]
  - Rash macular [Unknown]
  - Inappropriate schedule of product administration [Unknown]

NARRATIVE: CASE EVENT DATE: 20241101
